FAERS Safety Report 8602961-3 (Version None)
Quarter: 2012Q3

REPORT INFORMATION
  Report Type: 
  Country: None (occurrence: None)
  Receive Date: 20120817
  Receipt Date: 20120806
  Transmission Date: 20120928
  Serious: Yes (Hospitalization, Other)
  Sender: FDA-Public Use
  Company Number: AU-CELGENEUS-008-20785-09051624

PATIENT
  Sex: Female
  Weight: 62 kg

DRUGS (4)
  1. THALIDOMIDE [Suspect]
     Indication: MYELODYSPLASTIC SYNDROME
     Route: 048
     Dates: start: 20090427
  2. THALIDOMIDE [Suspect]
     Route: 048
     Dates: start: 20090610, end: 20090701
  3. VIDAZA [Suspect]
     Indication: MYELODYSPLASTIC SYNDROME
     Route: 065
     Dates: start: 20090427, end: 20090503
  4. VIDAZA [Suspect]
     Route: 065
     Dates: start: 20090610, end: 20090701

REACTIONS (2)
  - FUNGAL INFECTION [None]
  - FEBRILE NEUTROPENIA [None]
